FAERS Safety Report 7884986-9 (Version None)
Quarter: 2011Q4

REPORT INFORMATION
  Report Type: 
  Country: None (occurrence: None)
  Receive Date: 20111102
  Receipt Date: 20111003
  Transmission Date: 20120403
  Serious: Yes (Death, Hospitalization, Other)
  Sender: FDA-Public Use
  Company Number: JP-B.I. PHARMACEUTICALS,INC./RIDGEFIELD-2011-BP-17109NB

PATIENT
  Sex: Male

DRUGS (9)
  1. SPIRIVA [Suspect]
     Indication: CHRONIC OBSTRUCTIVE PULMONARY DISEASE
     Dosage: 5 MCG
     Route: 055
     Dates: start: 20110622
  2. HALCION [Concomitant]
     Dosage: 0.25 MG
     Route: 048
     Dates: start: 20110622
  3. HALTHROW [Concomitant]
     Dosage: 0.2 MG
     Route: 048
     Dates: start: 20110622
  4. VANCOMYCIN HCL [Concomitant]
     Indication: STAPHYLOCOCCAL INFECTION
     Dosage: 1 G
     Route: 042
     Dates: start: 20110629, end: 20110708
  5. MAGMITT [Concomitant]
     Dosage: 990 MG
     Route: 048
     Dates: start: 20110622
  6. RISPERDAL [Concomitant]
     Dosage: 1 MG
     Route: 048
     Dates: start: 20110622
  7. VERAPAMIL HCL [Concomitant]
     Dosage: 120 MG
     Route: 048
     Dates: start: 20110622
  8. TULOBUTEROL [Concomitant]
     Route: 062
     Dates: start: 20110622
  9. RABEPRAZOLE SODIUM [Concomitant]
     Dosage: 10 MG
     Route: 048
     Dates: start: 20110622

REACTIONS (2)
  - URTICARIA [None]
  - LUNG NEOPLASM MALIGNANT [None]
